FAERS Safety Report 4436357-5 (Version None)
Quarter: 2004Q3

REPORT INFORMATION
  Report Type: 
  Country: None (occurrence: None)
  Receive Date: 20040728
  Receipt Date: 20040527
  Transmission Date: 20050211
  Serious: Yes (Other)
  Sender: FDA-Public Use
  Company Number: 204700

PATIENT
  Age: 39 Year
  Sex: Male
  Weight: 74.7 kg

DRUGS (6)
  1. RITUXAN [Suspect]
     Indication: WALDENSTROM'S MACROGLOBULINAEMIA
     Dosage: 700 MG, 1/WEEK, INTRAVENOUS
     Route: 042
     Dates: start: 20040102, end: 20040124
  2. TYLENOL [Concomitant]
  3. BENADRYL [Concomitant]
  4. IV SOLUTION NOS (INTRAVENOUS SOLUTION NOS) [Concomitant]
  5. PEPCID [Concomitant]
  6. DECADRON [Concomitant]

REACTIONS (4)
  - CHILLS [None]
  - DIZZINESS [None]
  - HYPERHIDROSIS [None]
  - NAUSEA [None]
